FAERS Safety Report 8563487-9 (Version None)
Quarter: 2012Q3

REPORT INFORMATION
  Report Type: 
  Country: None (occurrence: None)
  Receive Date: 20120802
  Receipt Date: 20120723
  Transmission Date: 20120928
  Serious: Yes (Other)
  Sender: FDA-Public Use
  Company Number: US-009507513-1208USA000427

PATIENT

DRUGS (14)
  1. ZOCOR [Suspect]
     Dosage: MATERNAL DOSE
  2. VITAMINS (UNSPECIFIED) [Suspect]
  3. MORPHINE SULFATE [Suspect]
  4. METOPROLOL TARTRATE [Suspect]
     Dosage: MATERNAL DOSE
  5. HYDRALAZINE HCL [Suspect]
     Dosage: MATERNAL DOSE
  6. CARVEDILOL [Suspect]
     Dosage: MATERNAL DOSE
  7. [COMPOSITION UNSPECIFIED] [Suspect]
  8. CARVEDILOL [Suspect]
     Dosage: MATERNAL DOSE
     Route: 064
  9. FERROUS SULFATE TAB [Suspect]
     Dosage: MATERNAL DOSE
  10. CARVEDILOL [Suspect]
     Dosage: MATERNAL DOSE
     Route: 064
  11. ASPIRIN [Suspect]
     Dosage: MATERNAL DOSE
  12. CLOPIDOGREL [Suspect]
     Dosage: MATERNAL DOSE
  13. HEPARIN [Suspect]
  14. HYDRALAZINE HCL [Suspect]
     Dosage: MATERNAL DOSE

REACTIONS (2)
  - MATERNAL EXPOSURE DURING PREGNANCY [None]
  - CAESAREAN SECTION [None]
